FAERS Safety Report 20921975 (Version 7)
Quarter: 2022Q3

REPORT INFORMATION
  Report Type: Report from Study
  Country: FR (occurrence: FR)
  Receive Date: 20220607
  Receipt Date: 20220812
  Transmission Date: 20221026
  Serious: Yes (Hospitalization)
  Sender: FDA-Public Use
  Company Number: FR-NOVARTISPH-NVSC2022FR127743

PATIENT
  Age: 59 Year
  Sex: Female
  Weight: 57 kg

DRUGS (10)
  1. ALPELISIB [Suspect]
     Active Substance: ALPELISIB
     Indication: Breast cancer
     Dosage: UNK
     Route: 048
     Dates: start: 20220506, end: 20220527
  2. FULVESTRANT [Suspect]
     Active Substance: FULVESTRANT
     Indication: Breast cancer
     Dosage: 500 MG, QMO
     Route: 030
     Dates: start: 20220506, end: 20220520
  3. DENOSUMAB [Concomitant]
     Active Substance: DENOSUMAB
     Indication: Breast cancer
     Dosage: UNK
     Route: 065
     Dates: start: 201911
  4. GLYCERIN [Concomitant]
     Active Substance: GLYCERIN
     Indication: Rash maculo-papular
     Dosage: UNK
     Route: 065
     Dates: start: 20220520, end: 20220531
  5. VASELINE PURE [Concomitant]
     Active Substance: PETROLATUM
     Indication: Rash maculo-papular
     Dosage: UNK
     Route: 065
     Dates: start: 20220520, end: 20220531
  6. PREDNISOLONE [Concomitant]
     Active Substance: PREDNISOLONE
     Indication: Rash maculo-papular
     Dosage: UNK
     Route: 065
     Dates: start: 20220527, end: 20220625
  7. CETIRIZINE [Concomitant]
     Active Substance: CETIRIZINE HYDROCHLORIDE
     Indication: Rash maculo-papular
     Dosage: UNK
     Route: 065
     Dates: start: 20220527, end: 20220531
  8. ACETAMINOPHEN [Concomitant]
     Active Substance: ACETAMINOPHEN
     Indication: General physical condition
     Dosage: UNK
     Route: 065
     Dates: start: 20220520, end: 20220520
  9. LOPERAMIDE [Concomitant]
     Active Substance: LOPERAMIDE
     Indication: Diarrhoea
     Dosage: UNK
     Route: 065
     Dates: start: 20220520, end: 20220526
  10. DIFLUCORTOLONE VALERATE [Concomitant]
     Active Substance: DIFLUCORTOLONE VALERATE
     Indication: Rash maculo-papular
     Dosage: UNK
     Route: 065
     Dates: start: 20220516, end: 20220526

REACTIONS (1)
  - Stevens-Johnson syndrome [Recovered/Resolved]

NARRATIVE: CASE EVENT DATE: 20220601
